FAERS Safety Report 24413864 (Version 1)
Quarter: 2024Q4

REPORT INFORMATION
  Report Type: Report from Study
  Country: US (occurrence: US)
  Receive Date: 20241008
  Receipt Date: 20241008
  Transmission Date: 20250115
  Serious: No
  Sender: TG THERAPEUTICS
  Company Number: US-TG THERAPEUTICS INC.-TGT003911

PATIENT

DRUGS (5)
  1. UBLITUXIMAB [Suspect]
     Active Substance: UBLITUXIMAB
     Indication: Multiple sclerosis
     Dosage: 150 MILLIGRAM
     Route: 042
     Dates: start: 20231030, end: 20231030
  2. UBLITUXIMAB [Suspect]
     Active Substance: UBLITUXIMAB
     Dosage: 450 MILLIGRAM
     Route: 042
     Dates: start: 20240415, end: 20240415
  3. LYRICA [Concomitant]
     Active Substance: PREGABALIN
     Indication: Product used for unknown indication
  4. ATORVASTATIN CALCIUM [Concomitant]
     Active Substance: ATORVASTATIN CALCIUM
     Indication: Product used for unknown indication
  5. LUBIPROSTONE [Concomitant]
     Active Substance: LUBIPROSTONE
     Indication: Product used for unknown indication

REACTIONS (5)
  - Alopecia [Unknown]
  - Blood iron decreased [Unknown]
  - Blood creatinine increased [Unknown]
  - Anaemia [Unknown]
  - Incorrect dose administered [Unknown]

NARRATIVE: CASE EVENT DATE: 20231101
